FAERS Safety Report 22289855 (Version 1)
Quarter: 2023Q2

REPORT INFORMATION
  Report Type: Spontaneous
  Country: IN (occurrence: None)
  Receive Date: 20230505
  Receipt Date: 20230505
  Transmission Date: 20230721
  Serious: Yes (Hospitalization, Other)
  Sender: FDA-Public Use
  Company Number: 2023A101840

PATIENT
  Age: 83 Year
  Sex: Male

DRUGS (3)
  1. TICAGRELOR [Suspect]
     Active Substance: TICAGRELOR
     Indication: Chronic coronary syndrome
     Route: 048
  2. ASPIRIN [Suspect]
     Active Substance: ASPIRIN
     Indication: Chronic coronary syndrome
  3. HEPARIN SODIUM [Concomitant]
     Active Substance: HEPARIN SODIUM

REACTIONS (4)
  - Haemoglobin decreased [Recovering/Resolving]
  - Abdominal distension [Unknown]
  - Abdominal pain [Unknown]
  - Retroperitoneal haematoma [Unknown]
